FAERS Safety Report 4311677-3 (Version None)
Quarter: 2004Q1

REPORT INFORMATION
  Report Type: 
  Country: None (occurrence: None)
  Receive Date: 20040303
  Receipt Date: 20040303
  Transmission Date: 20041129
  Serious: Yes (Hospitalization)
  Sender: FDA-Public Use
  Company Number: None

PATIENT
  Age: 41 Year
  Sex: Male

DRUGS (1)
  1. NEVIRAPINE [Suspect]
     Indication: HIV INFECTION
     Dates: start: 20031009, end: 20031109

REACTIONS (3)
  - ABDOMINAL PAIN [None]
  - DYSURIA [None]
  - HEPATITIS ACUTE [None]
